FAERS Safety Report 9308522 (Version 1)
Quarter: 2013Q2

REPORT INFORMATION
  Report Type: Spontaneous
  Country: HU (occurrence: HU)
  Receive Date: 20130524
  Receipt Date: 20130524
  Transmission Date: 20140414
  Serious: Yes (Death)
  Sender: FDA-Public Use
  Company Number: HU-ACTELION-A-CH2013-83245

PATIENT
  Age: 67 Year
  Sex: Male

DRUGS (8)
  1. TRACLEER [Suspect]
     Indication: PULMONARY ARTERIAL HYPERTENSION
     Dosage: 125 MG, BID
     Route: 048
     Dates: start: 201002, end: 201305
  2. TRACLEER [Suspect]
     Dosage: 62.5 MG, BID
     Route: 048
     Dates: start: 201001, end: 201002
  3. SILDENAFIL [Concomitant]
     Dosage: UNK
     Dates: start: 200905
  4. FUROSEMID [Concomitant]
  5. KALIUM [Concomitant]
  6. METFORMIN [Concomitant]
  7. GLIMEPIRIDE [Concomitant]
  8. MILURIT [Concomitant]

REACTIONS (1)
  - Cardiac failure [Fatal]
